FAERS Safety Report 4470852-8 (Version None)
Quarter: 2004Q4

REPORT INFORMATION
  Report Type: 
  Country: None (occurrence: None)
  Receive Date: 20041011
  Receipt Date: 20040930
  Transmission Date: 20050328
  Serious: Yes (Hospitalization)
  Sender: FDA-Public Use
  Company Number: PHRM2004FR02946

PATIENT
  Age: 52 Year
  Sex: Male

DRUGS (3)
  1. SANDOSTATIN [Suspect]
     Indication: HAEMATEMESIS
     Dosage: 25 UG, QH
     Route: 042
     Dates: start: 20040702, end: 20040703
  2. RED BLOOD CELLS [Concomitant]
     Indication: HAEMATEMESIS
     Route: 042
  3. PLATELETS [Concomitant]
     Indication: HAEMATEMESIS
     Dosage: 6 IU
     Route: 042

REACTIONS (1)
  - TROPONIN INCREASED [None]
